FAERS Safety Report 17400012 (Version 3)
Quarter: 2020Q1

REPORT INFORMATION
  Report Type: Report from Study
  Country: None (occurrence: US)
  Receive Date: 20200211
  Receipt Date: 20200310
  Transmission Date: 20200409
  Serious: Yes (Hospitalization)
  Sender: FDA-Public Use
  Company Number: US-ABBVIE-20K-163-3264290-00

PATIENT
  Age: 49 Year
  Sex: Female
  Weight: 82 kg

DRUGS (34)
  1. METOPROLOL SUCCINATE ER [Concomitant]
     Active Substance: METOPROLOL SUCCINATE
     Indication: TACHYCARDIA
     Route: 048
     Dates: start: 201601
  2. LEVSIN [Concomitant]
     Active Substance: HYOSCYAMINE SULFATE
     Indication: COLITIS ULCERATIVE
     Route: 048
     Dates: start: 201605, end: 2019
  3. AMBIEN [Concomitant]
     Active Substance: ZOLPIDEM TARTRATE
     Indication: INSOMNIA
     Route: 048
     Dates: start: 20200115, end: 20200120
  4. DEXTROSE. [Concomitant]
     Active Substance: DEXTROSE
     Route: 042
     Dates: start: 20200130, end: 20200203
  5. PEPCID [Concomitant]
     Active Substance: FAMOTIDINE
     Indication: DYSPEPSIA
     Route: 048
     Dates: start: 20200115, end: 20200120
  6. SODIUM CHLORIDE. [Concomitant]
     Active Substance: SODIUM CHLORIDE
     Indication: FLUID REPLACEMENT
     Route: 040
     Dates: start: 20200115, end: 20200115
  7. ZOFRAN [Concomitant]
     Active Substance: ONDANSETRON HYDROCHLORIDE
     Route: 048
     Dates: start: 20200118, end: 20200120
  8. FLUZONE [Concomitant]
     Active Substance: INFLUENZA A VIRUS A/CALIFORNIA/7/2009 X-179A (H1N1) ANTIGEN (FORMALDEHYDE INACTIVATED)\INFLUENZA A VIRUS A/VICTORIA/210/2009 X-187 (H3N2) ANTIGEN (FORMALDEHYDE INACTIVATED)\INFLUENZA B VIRUS B/BRISBANE/60/2008 ANTIGEN (FORMALDEHYDE INACTIVATED)
     Indication: ROUTINE HEALTH MAINTENANCE
     Route: 030
     Dates: start: 20200116, end: 20200116
  9. BENADRYL [Concomitant]
     Active Substance: DIPHENHYDRAMINE HYDROCHLORIDE
     Indication: ALLERGY PROPHYLAXIS
     Route: 048
     Dates: start: 20200115, end: 20200120
  10. FLAGYL [Concomitant]
     Active Substance: METRONIDAZOLE\METRONIDAZOLE HYDROCHLORIDE
     Indication: INFECTION PROPHYLAXIS
     Route: 042
     Dates: start: 20200115, end: 20200115
  11. PROMETHAZINE [Concomitant]
     Active Substance: PROMETHAZINE HYDROCHLORIDE
     Indication: NAUSEA
     Route: 030
     Dates: start: 20200115, end: 20200115
  12. SODIUM CHLORIDE. [Concomitant]
     Active Substance: SODIUM CHLORIDE
     Indication: FLUID REPLACEMENT
     Route: 042
     Dates: start: 20200115, end: 20200120
  13. PEPCID [Concomitant]
     Active Substance: FAMOTIDINE
     Route: 048
     Dates: start: 20200130, end: 20200203
  14. CALTRATE [Concomitant]
     Active Substance: CALCIUM CARBONATE
     Indication: ROUTINE HEALTH MAINTENANCE
     Route: 048
     Dates: start: 2014
  15. LEVSIN [Concomitant]
     Active Substance: HYOSCYAMINE SULFATE
     Indication: ABDOMINAL PAIN
  16. ZOFRAN [Concomitant]
     Active Substance: ONDANSETRON HYDROCHLORIDE
     Route: 048
     Dates: start: 20200201, end: 20200203
  17. DEXTROSE. [Concomitant]
     Active Substance: DEXTROSE
     Indication: FLUID REPLACEMENT
     Route: 042
     Dates: start: 20200115, end: 20200120
  18. GLUCAGON HCL [Concomitant]
     Indication: BLOOD GLUCOSE ABNORMAL
     Route: 030
     Dates: start: 20200115, end: 20200120
  19. OMNIPAQUE [Concomitant]
     Active Substance: IOHEXOL
     Indication: COMPUTERISED TOMOGRAM
     Route: 030
     Dates: start: 20200115, end: 20200115
  20. HUMIRA [Suspect]
     Active Substance: ADALIMUMAB
     Route: 058
     Dates: start: 20200120
  21. ZOFRAN [Concomitant]
     Active Substance: ONDANSETRON HYDROCHLORIDE
     Indication: NAUSEA
     Route: 048
     Dates: start: 201506
  22. VITAMIN D2 [Concomitant]
     Active Substance: ERGOCALCIFEROL
     Indication: VITAMIN D DEFICIENCY
     Route: 048
     Dates: start: 2014
  23. METOPROLOL. [Concomitant]
     Active Substance: METOPROLOL
     Indication: TACHYCARDIA
     Route: 048
     Dates: start: 20200117, end: 20200120
  24. METOPROLOL. [Concomitant]
     Active Substance: METOPROLOL
     Route: 048
     Dates: start: 20200131, end: 20200203
  25. CETIRIZINE [Concomitant]
     Active Substance: CETIRIZINE HYDROCHLORIDE
     Indication: ALLERGY PROPHYLAXIS
     Route: 048
     Dates: start: 20200131, end: 20200203
  26. ATIVAN [Concomitant]
     Active Substance: LORAZEPAM
     Indication: INSOMNIA
     Route: 030
     Dates: start: 20200130, end: 20200130
  27. HUMIRA [Suspect]
     Active Substance: ADALIMUMAB
     Indication: COLITIS ULCERATIVE
     Route: 058
     Dates: start: 20160729, end: 20200108
  28. AZATHIOPRINE. [Suspect]
     Active Substance: AZATHIOPRINE
     Indication: COLITIS ULCERATIVE
     Route: 048
     Dates: start: 20160721, end: 20170731
  29. SODIUM CHLORIDE. [Concomitant]
     Active Substance: SODIUM CHLORIDE
     Route: 040
     Dates: start: 20200130, end: 20200130
  30. ZOFRAN [Concomitant]
     Active Substance: ONDANSETRON HYDROCHLORIDE
     Route: 030
     Dates: start: 20200115, end: 20200118
  31. PREVNAR 13 [Concomitant]
     Active Substance: PNEUMOCOCCAL 13-VALENT CONJUGATE VACCINE
     Indication: ROUTINE HEALTH MAINTENANCE
     Route: 030
     Dates: start: 20200116, end: 20200116
  32. GLUCAGON HCL [Concomitant]
     Route: 030
     Dates: start: 20200130, end: 20200203
  33. OMNIPAQUE [Concomitant]
     Active Substance: IOHEXOL
     Route: 048
     Dates: start: 20200115, end: 20200115
  34. LACTATED RINGERS SOLUTION [Concomitant]
     Active Substance: CALCIUM CHLORIDE\POTASSIUM CHLORIDE\SODIUM CHLORIDE\SODIUM LACTATE
     Indication: ELECTROLYTE SUBSTITUTION THERAPY
     Route: 040
     Dates: start: 20200130, end: 20200130

REACTIONS (2)
  - Crohn^s disease [Not Recovered/Not Resolved]
  - Crohn^s disease [Recovered/Resolved]

NARRATIVE: CASE EVENT DATE: 20200113
